FAERS Safety Report 13546638 (Version 1)
Quarter: 2017Q2

REPORT INFORMATION
  Report Type: Spontaneous
  Country: US (occurrence: US)
  Receive Date: 20170515
  Receipt Date: 20170515
  Transmission Date: 20170830
  Serious: Yes (Other)
  Sender: FDA-Public Use
  Company Number: None

PATIENT
  Age: 41 Year
  Sex: Male

DRUGS (4)
  1. MIRAPEX [Concomitant]
     Active Substance: PRAMIPEXOLE DIHYDROCHLORIDE
  2. REMERON [Concomitant]
     Active Substance: MIRTAZAPINE
  3. KLONOPIN [Suspect]
     Active Substance: CLONAZEPAM
  4. REQUIP [Suspect]
     Active Substance: ROPINIROLE HYDROCHLORIDE

REACTIONS (10)
  - Pain [None]
  - Somnolence [None]
  - Restless legs syndrome [None]
  - Intervertebral disc protrusion [None]
  - Spinal column stenosis [None]
  - Condition aggravated [None]
  - Constipation [None]
  - Insomnia [None]
  - Depression [None]
  - Neuropathy peripheral [None]
